FAERS Safety Report 7563441-X (Version None)
Quarter: 2011Q2

REPORT INFORMATION
  Report Type: 
  Country: None (occurrence: None)
  Receive Date: 20110622
  Receipt Date: 20110617
  Transmission Date: 20111010
  Serious: Yes (Life-Threatening, Hospitalization)
  Sender: FDA-Public Use
  Company Number: D0071149A

PATIENT
  Sex: Female
  Weight: 101 kg

DRUGS (5)
  1. METFORMIN HCL [Concomitant]
     Route: 065
  2. ACTOS [Concomitant]
     Route: 065
  3. VOTRIENT [Suspect]
     Indication: RENAL CANCER METASTATIC
     Dosage: 400MG PER DAY
     Route: 048
     Dates: start: 20110216, end: 20110406
  4. SUNITINIB MALATE [Suspect]
     Route: 065
     Dates: start: 20110406, end: 20110413
  5. ROCEPHIN [Suspect]
     Indication: URINARY TRACT INFECTION
     Route: 065

REACTIONS (15)
  - ENTERITIS [None]
  - DEPRESSED MOOD [None]
  - VOMITING [None]
  - HEPATOTOXICITY [None]
  - HYPOTHYROIDISM [None]
  - PHLEBITIS [None]
  - DECREASED APPETITE [None]
  - SKIN CANDIDA [None]
  - SICCA SYNDROME [None]
  - DYSPNOEA [None]
  - ABDOMINAL PAIN [None]
  - OEDEMA [None]
  - ACUTE HEPATIC FAILURE [None]
  - ESCHERICHIA URINARY TRACT INFECTION [None]
  - ASTHENIA [None]
